FAERS Safety Report 7513855-9 (Version None)
Quarter: 2011Q2

REPORT INFORMATION
  Report Type: 
  Country: None (occurrence: None)
  Receive Date: 20110531
  Receipt Date: 20110518
  Transmission Date: 20111010
  Serious: Yes (Other)
  Sender: FDA-Public Use
  Company Number: PHHY2011US41770

PATIENT
  Sex: Female
  Weight: 1 kg

DRUGS (4)
  1. GILENYA [Suspect]
     Indication: MULTIPLE SCLEROSIS
     Dosage: 0.5 MG, QD
     Route: 048
     Dates: start: 20101130, end: 20110509
  2. AMITIZA [Concomitant]
     Indication: IRRITABLE BOWEL SYNDROME
     Dosage: 24 MG, QD
     Route: 048
  3. NUVIGIL [Concomitant]
     Indication: FATIGUE
     Dosage: 150 MG, QD
     Route: 048
     Dates: start: 20110302
  4. CELEXA [Concomitant]
     Indication: DEPRESSION
     Dosage: 20 MG, QD
     Route: 048
     Dates: start: 20110110

REACTIONS (5)
  - GENITAL HERPES [None]
  - PAIN [None]
  - PRURITUS [None]
  - VULVAL DISORDER [None]
  - HERPES ZOSTER [None]
